FAERS Safety Report 4450628-8 (Version None)
Quarter: 2004Q3

REPORT INFORMATION
  Report Type: 
  Country: None (occurrence: None)
  Receive Date: 20040914
  Receipt Date: 20040830
  Transmission Date: 20050211
  Serious: Yes (Hospitalization, Other)
  Sender: FDA-Public Use
  Company Number: A03200403008

PATIENT
  Age: 36 Year
  Sex: Female

DRUGS (7)
  1. AMBIEN [Suspect]
     Dosage: 20 MG HS - ORAL
     Route: 048
  2. MIRTAZAPINE [Concomitant]
  3. VENLAFAXINE HCL [Concomitant]
  4. ARIPIPRAZOLE [Concomitant]
  5. TIAGABINE HYDROCHLORIDE [Concomitant]
  6. CLONAZEPAM [Concomitant]
  7. LORAZEPAM [Concomitant]

REACTIONS (3)
  - CAESAREAN SECTION [None]
  - DRUG EXPOSURE DURING PREGNANCY [None]
  - PREMATURE BABY [None]
